FAERS Safety Report 14093862 (Version 1)
Quarter: 2017Q4

REPORT INFORMATION
  Report Type: Spontaneous
  Country: US (occurrence: US)
  Receive Date: 20171016
  Receipt Date: 20171016
  Transmission Date: 20180321
  Serious: Yes (Death, Hospitalization)
  Sender: FDA-Public Use
  Company Number: US-PFIZER INC-2017444691

PATIENT
  Age: 73 Year
  Sex: Female
  Weight: 51 kg

DRUGS (11)
  1. LYRICA [Suspect]
     Active Substance: PREGABALIN
     Indication: PAIN IN EXTREMITY
     Dosage: 50 MG, 3X/DAY
     Route: 048
     Dates: start: 201511
  2. BENICAR [Concomitant]
     Active Substance: OLMESARTAN MEDOXOMIL
     Dosage: 40 MG, 1X/DAY
     Dates: start: 201304, end: 201709
  3. ROPINIROLE. [Concomitant]
     Active Substance: ROPINIROLE
     Indication: RESTLESS LEGS SYNDROME
     Dosage: 2 MG, 1X/DAY
     Dates: start: 201606, end: 201709
  4. DEXILANT [Concomitant]
     Active Substance: DEXLANSOPRAZOLE
     Indication: GASTROOESOPHAGEAL REFLUX DISEASE
     Dosage: 60 MG, 1X/DAY
     Dates: start: 201512, end: 201709
  5. ULTRAM [Concomitant]
     Active Substance: TRAMADOL HYDROCHLORIDE
     Indication: PAIN IN EXTREMITY
     Dosage: 50 MG, 4X/DAY
     Dates: start: 201304, end: 2016
  6. NORCO [Concomitant]
     Active Substance: ACETAMINOPHEN\HYDROCODONE BITARTRATE
     Indication: NECK PAIN
     Dosage: 7.5-325, 1 TABLET , 2X/DAY
     Route: 048
     Dates: start: 201310, end: 201709
  7. CELEBREX [Suspect]
     Active Substance: CELECOXIB
     Indication: MUSCULOSKELETAL PAIN
     Dosage: 200 MG, 1X/DAY
     Route: 048
     Dates: start: 20150116
  8. ESTRING [Concomitant]
     Active Substance: ESTRADIOL
     Indication: MENOPAUSAL DISORDER
     Dosage: 2 MG, EVERY 3 MONTHS
     Dates: start: 201304, end: 201709
  9. ALLOPURINOL. [Concomitant]
     Active Substance: ALLOPURINOL
     Indication: GOUT
     Dosage: 100 MG, 3X/DAY
     Dates: start: 201304, end: 201709
  10. ATENOLOL. [Concomitant]
     Active Substance: ATENOLOL
     Dosage: 50 MG, 1X/DAY AT BEDTIME
     Dates: start: 201304, end: 201709
  11. OXYBUTYNIN. [Concomitant]
     Active Substance: OXYBUTYNIN CHLORIDE
     Indication: URINARY INCONTINENCE
     Dosage: 10 MG, 1X/DAY
     Dates: start: 201605, end: 201709

REACTIONS (8)
  - Dehydration [Unknown]
  - Mental status changes [Fatal]
  - Mental status changes [Unknown]
  - Confusional state [Fatal]
  - Diarrhoea [Unknown]
  - Dementia [Fatal]
  - Memory impairment [Unknown]
  - Fall [Fatal]

NARRATIVE: CASE EVENT DATE: 201608
